FAERS Safety Report 5800359-4 (Version None)
Quarter: 2008Q3

REPORT INFORMATION
  Report Type: 
  Country: None (occurrence: None)
  Receive Date: 20080702
  Receipt Date: 20080702
  Transmission Date: 20090109
  Serious: Yes (Hospitalization)
  Sender: FDA-Public Use
  Company Number: None

PATIENT
  Sex: Female

DRUGS (1)
  1. LOVENOX [Suspect]
     Dosage: 80MG SUB-Q TWICE DAILY
     Route: 058

REACTIONS (3)
  - CONTUSION [None]
  - HEAD INJURY [None]
  - LOSS OF CONSCIOUSNESS [None]
